FAERS Safety Report 17139684 (Version 1)
Quarter: 2019Q4

REPORT INFORMATION
  Report Type: Spontaneous
  Country: IN (occurrence: IN)
  Receive Date: 20191211
  Receipt Date: 20191211
  Transmission Date: 20200122
  Serious: Yes (Hospitalization, Other)
  Sender: FDA-Public Use
  Company Number: IN-IPCA LABORATORIES LIMITED-IPC-2019-IN-002217

PATIENT

DRUGS (2)
  1. ARTESUNATE [Concomitant]
     Active Substance: ARTESUNATE
     Indication: PRODUCT USED FOR UNKNOWN INDICATION
     Dosage: UNK
     Route: 065
  2. CHLOROQUINE PHOSPHATE. [Suspect]
     Active Substance: CHLOROQUINE PHOSPHATE
     Indication: PYREXIA
     Dosage: 2.5 GRAM
     Route: 065

REACTIONS (4)
  - Acute kidney injury [Recovered/Resolved]
  - Pigment nephropathy [Recovered/Resolved]
  - Haemolysis [Recovered/Resolved]
  - Jaundice [Recovered/Resolved]
